FAERS Safety Report 5714289-X (Version None)
Quarter: 2008Q2

REPORT INFORMATION
  Report Type: 
  Country: None (occurrence: None)
  Receive Date: 20080423
  Receipt Date: 20080423
  Transmission Date: 20081010
  Serious: Yes (Death)
  Sender: FDA-Public Use
  Company Number: None

PATIENT
  Age: 64 Year
  Sex: Female
  Weight: 72.5755 kg

DRUGS (1)
  1. HEPARIN [Suspect]
     Indication: ANTICOAGULANT THERAPY
     Dates: start: 20080215, end: 20080222

REACTIONS (3)
  - HAEMORRHAGE [None]
  - INTRACARDIAC THROMBUS [None]
  - PHARMACEUTICAL PRODUCT COMPLAINT [None]
